FAERS Safety Report 25751586 (Version 1)
Quarter: 2025Q3

REPORT INFORMATION
  Report Type: Spontaneous
  Country: US (occurrence: None)
  Receive Date: 20250901
  Receipt Date: 20250901
  Transmission Date: 20251021
  Serious: Yes (Other)
  Sender: FDA-CTU
  Company Number: None

PATIENT
  Age: 61 Year
  Sex: Female
  Weight: 63.9 kg

DRUGS (5)
  1. ABILIFY MAINTENA [Suspect]
     Active Substance: ARIPIPRAZOLE
     Indication: Schizophrenia
  2. FOSAMAX [Concomitant]
     Active Substance: ALENDRONATE SODIUM
  3. BUPROPION [Concomitant]
     Active Substance: BUPROPION
  4. RISPERIDONE [Concomitant]
     Active Substance: RISPERIDONE
  5. OXCARBAZEPINE [Concomitant]
     Active Substance: OXCARBAZEPINE

REACTIONS (4)
  - Restlessness [None]
  - Self-injurious ideation [None]
  - Violence-related symptom [None]
  - Intrusive thoughts [None]

NARRATIVE: CASE EVENT DATE: 20200701
